FAERS Safety Report 5164245-8 (Version None)
Quarter: 2006Q4

REPORT INFORMATION
  Report Type: 
  Country: None (occurrence: None)
  Receive Date: 20060918
  Receipt Date: 20051021
  Transmission Date: 20070319
  Serious: Yes (Hospitalization, Other)
  Sender: FDA-Public Use
  Company Number: US-JNJFOC-20050906407

PATIENT
  Age: 50 Year
  Sex: Female

DRUGS (8)
  1. TOPAMAX [Suspect]
     Indication: ANXIETY
     Dosage: SEE IMAGE
     Route: 048
     Dates: start: 20040901
  2. TOPAMAX [Suspect]
     Indication: PAIN
     Dosage: SEE IMAGE
     Route: 048
     Dates: start: 20040901
  3. TOPAMAX [Suspect]
     Indication: ANXIETY
     Dosage: SEE IMAGE
     Route: 048
     Dates: start: 20041022
  4. TOPAMAX [Suspect]
     Indication: PAIN
     Dosage: SEE IMAGE
     Route: 048
     Dates: start: 20041022
  5. RITALIN [Concomitant]
  6. NEURONTIN [Concomitant]
  7. GABITRIL [Concomitant]
  8. TRAMADOL HCL [Concomitant]

REACTIONS (1)
  - CONVULSION [None]
